FAERS Safety Report 5664253-4 (Version None)
Quarter: 2008Q1

REPORT INFORMATION
  Report Type: 
  Country: None (occurrence: None)
  Receive Date: 20080314
  Receipt Date: 20080306
  Transmission Date: 20080703
  Serious: No
  Sender: FDA-Public Use
  Company Number: US-BAYER-200816267NA

PATIENT
  Age: 30 Year
  Sex: Female
  Weight: 65 kg

DRUGS (3)
  1. MIRENA [Suspect]
     Indication: CONTRACEPTION
     Route: 015
     Dates: start: 20070625
  2. EXCEDRIN NOS [Concomitant]
     Indication: HEADACHE
     Route: 048
  3. ORAL CONTRACEPTIVE NOS [Concomitant]
     Route: 048
     Dates: start: 20010101, end: 20050101

REACTIONS (2)
  - DEVICE BREAKAGE [None]
  - IUCD COMPLICATION [None]
